FAERS Safety Report 18682720 (Version 2)
Quarter: 2021Q1

REPORT INFORMATION
  Report Type: Spontaneous
  Country: JP (occurrence: JP)
  Receive Date: 20201230
  Receipt Date: 20210113
  Transmission Date: 20210419
  Serious: Yes (Life-Threatening, Hospitalization, Other)
  Sender: FDA-Public Use
  Company Number: JP-ACCORD-212348

PATIENT
  Age: 73 Year
  Sex: Male

DRUGS (2)
  1. METHOTREXATE. [Suspect]
     Active Substance: METHOTREXATE
     Indication: POLYMYALGIA RHEUMATICA
  2. PREDNISOLONE. [Suspect]
     Active Substance: PREDNISOLONE
     Indication: POLYMYALGIA RHEUMATICA

REACTIONS (3)
  - Lymphopenia [Recovering/Resolving]
  - Immunodeficiency [Recovered/Resolved]
  - Mycobacterial infection [Recovered/Resolved]
